FAERS Safety Report 8789690 (Version 1)
Quarter: 2012Q4

REPORT INFORMATION
  Report Type: Spontaneous
  Country: FR (occurrence: None)
  Receive Date: 20120906
  Receipt Date: 20120906
  Transmission Date: 20130627
  Serious: Yes (Other)
  Sender: FDA-Public Use
  Company Number: 2012P1055684

PATIENT
  Age: 88 Year
  Sex: Female

DRUGS (5)
  1. CITALOPRAM [Suspect]
     Indication: MAJOR DEPRESSION
  2. MICONAZOLE [Suspect]
  3. LEVOTNYROXINE [Concomitant]
  4. TIMOLOL [Concomitant]
  5. TRAVOPROST [Concomitant]

REACTIONS (11)
  - Hyponatraemia [None]
  - Drug interaction [None]
  - Somnolence [None]
  - Confusional state [None]
  - Hypertonia [None]
  - Tremor [None]
  - Tachycardia [None]
  - Hypertension [None]
  - Extrapyramidal disorder [None]
  - Hyperreflexia [None]
  - Mental disorder [None]
